FAERS Safety Report 23814494 (Version 1)
Quarter: 2024Q2

REPORT INFORMATION
  Report Type: Spontaneous
  Country: US (occurrence: US)
  Receive Date: 20240503
  Receipt Date: 20240503
  Transmission Date: 20240716
  Serious: No
  Sender: FDA-Public Use
  Company Number: US-BAYER-2024A062923

PATIENT

DRUGS (1)
  1. MIRALAX [Suspect]
     Active Substance: POLYETHYLENE GLYCOL 3350
     Dosage: NOT AVAILABLE DOSE
     Route: 048
     Dates: start: 20240424, end: 20240425

REACTIONS (1)
  - Labelled drug-disease interaction medication error [Unknown]
